FAERS Safety Report 25802748 (Version 1)
Quarter: 2025Q3

REPORT INFORMATION
  Report Type: Spontaneous
  Country: US (occurrence: None)
  Receive Date: 20250914
  Receipt Date: 20250914
  Transmission Date: 20251021
  Serious: Yes (Disabling, Other)
  Sender: FDA-CTU
  Company Number: None

PATIENT
  Age: 37 Year
  Sex: Female

DRUGS (21)
  1. INVEGA [Suspect]
     Active Substance: PALIPERIDONE
     Indication: Mental disorder
     Route: 048
  2. FLONASE [Concomitant]
     Active Substance: FLUTICASONE PROPIONATE
  3. MECLIZINE [Concomitant]
     Active Substance: MECLIZINE HYDROCHLORIDE
  4. VITAMINS [Concomitant]
     Active Substance: VITAMINS
  5. VITAMIN D [Concomitant]
     Active Substance: VITAMIN D NOS
  6. LATANOPROST [Concomitant]
     Active Substance: LATANOPROST
  7. LEVOTHYROXINE [Concomitant]
     Active Substance: LEVOTHYROXINE
  8. XYZAL [Concomitant]
     Active Substance: LEVOCETIRIZINE DIHYDROCHLORIDE
  9. CABERGOLINE [Concomitant]
     Active Substance: CABERGOLINE
  10. sodium flouride 1.1% dental paste [Concomitant]
  11. baby aspirin 81 mg ec tablet [Concomitant]
  12. QUETIAPINE [Concomitant]
     Active Substance: QUETIAPINE
  13. QUETIAPINE FUMARATE [Concomitant]
     Active Substance: QUETIAPINE FUMARATE
  14. SIMVASTATIN [Concomitant]
     Active Substance: SIMVASTATIN
  15. FAMOTIDINE [Concomitant]
     Active Substance: FAMOTIDINE
  16. KETOCONAZOLE [Concomitant]
     Active Substance: KETOCONAZOLE
  17. WEGOVY [Concomitant]
     Active Substance: SEMAGLUTIDE
  18. VENTOLIN [Concomitant]
     Active Substance: ALBUTEROL SULFATE
  19. metoprolol succ er tablet [Concomitant]
  20. MIRALAX [Concomitant]
     Active Substance: POLYETHYLENE GLYCOL 3350
  21. TYLENOL EXTRA STRENGTH [Concomitant]
     Active Substance: ACETAMINOPHEN

REACTIONS (1)
  - Blood prolactin increased [None]

NARRATIVE: CASE EVENT DATE: 20230101
